FAERS Safety Report 17443714 (Version 1)
Quarter: 2020Q1

REPORT INFORMATION
  Report Type: Spontaneous
  Country: US (occurrence: US)
  Receive Date: 20200221
  Receipt Date: 20200221
  Transmission Date: 20200409
  Serious: Yes (Other)
  Sender: FDA-Public Use
  Company Number: US-ASTRAZENECA-2020SE02958

PATIENT
  Sex: Male
  Weight: 59 kg

DRUGS (4)
  1. SYMBICORT [Suspect]
     Active Substance: BUDESONIDE\FORMOTEROL FUMARATE DIHYDRATE
     Indication: PNEUMONIA
     Dosage: 160/4.5 INHALATION TWO TIMES A DAY
     Route: 055
  2. SYMBICORT [Suspect]
     Active Substance: BUDESONIDE\FORMOTEROL FUMARATE DIHYDRATE
     Indication: PNEUMONIA
     Dosage: 160/4.5 INHALATION TWO TIMES A DAY, 5 YEARS AGO
     Route: 055
  3. SYMBICORT [Suspect]
     Active Substance: BUDESONIDE\FORMOTEROL FUMARATE DIHYDRATE
     Indication: DIABETES MELLITUS
     Dosage: 160/4.5 INHALATION TWO TIMES A DAY, 5 YEARS AGO
     Route: 055
  4. SYMBICORT [Suspect]
     Active Substance: BUDESONIDE\FORMOTEROL FUMARATE DIHYDRATE
     Indication: DIABETES MELLITUS
     Dosage: 160/4.5 INHALATION TWO TIMES A DAY
     Route: 055

REACTIONS (6)
  - Diabetic foot infection [Unknown]
  - Mobility decreased [Unknown]
  - Drug dose omission by device [Unknown]
  - Device issue [Unknown]
  - Off label use [Unknown]
  - Therapy cessation [Unknown]
